FAERS Safety Report 6887835-0 (Version None)
Quarter: 2010Q3

REPORT INFORMATION
  Report Type: 
  Country: None (occurrence: None)
  Receive Date: 20100730
  Receipt Date: 20100727
  Transmission Date: 20110219
  Serious: Yes (Life-Threatening, Hospitalization)
  Sender: FDA-Public Use
  Company Number: US-ROCHE-695288

PATIENT
  Sex: Male
  Weight: 84.5 kg

DRUGS (24)
  1. TOCILIZUMAB [Suspect]
     Indication: RHEUMATOID ARTHRITIS
     Dosage: STARTING DOSE: 8 MG/KG MONTHLY.
     Route: 042
     Dates: start: 20060925
  2. TOCILIZUMAB [Suspect]
     Dosage: DOSE: 33.2 ML
     Route: 042
     Dates: start: 20091214
  3. TOCILIZUMAB [Suspect]
     Dosage: DOSE: 33.6 ML
     Route: 042
     Dates: start: 20100111
  4. TOCILIZUMAB [Suspect]
     Dosage: DOSE: 33.6 ML
     Route: 042
     Dates: start: 20100208
  5. TOCILIZUMAB [Suspect]
     Dosage: DOSE: 33.6 ML LAST DOSE PRIOR TO SAE 08 MARCH 2010
     Route: 042
     Dates: start: 20100308
  6. TOCILIZUMAB [Suspect]
     Dosage: EARLIER ENROLLED IN WA18063
     Route: 042
  7. CALTRATE [Concomitant]
     Dates: start: 19940824
  8. ACTONEL [Concomitant]
     Dates: start: 20010109
  9. NEXIUM [Concomitant]
     Dates: start: 20020701
  10. SKELAXIN [Concomitant]
     Dates: start: 20060217, end: 20100101
  11. UROXATRAL [Concomitant]
     Dates: start: 20070312
  12. TRICOR [Concomitant]
     Route: 048
     Dates: start: 20080603
  13. PLAQUENIL [Concomitant]
     Route: 048
     Dates: start: 19981002
  14. IMURAN [Concomitant]
     Dates: start: 19910830
  15. PREDNISONE [Concomitant]
     Route: 048
     Dates: start: 20090805
  16. PREDNISONE [Concomitant]
     Route: 048
  17. PREDNISONE [Concomitant]
     Route: 048
     Dates: start: 20100507
  18. ADVIL LIQUI-GELS [Concomitant]
     Dates: start: 20030101
  19. ASPIRIN [Concomitant]
     Dates: start: 20100405
  20. ZOCOR [Concomitant]
     Dates: start: 20100405
  21. TOPROL-XL [Concomitant]
     Dates: start: 20100405
  22. COENZYME Q10 [Concomitant]
     Dates: start: 20100405
  23. PLAVIX [Concomitant]
     Dates: start: 20100405
  24. LISINOPRIL [Concomitant]
     Dates: start: 20100405

REACTIONS (1)
  - MYOCARDIAL INFARCTION [None]
